FAERS Safety Report 4910577-5 (Version None)
Quarter: 2006Q1

REPORT INFORMATION
  Report Type: 
  Country: None (occurrence: None)
  Receive Date: 20060214
  Receipt Date: 20060206
  Transmission Date: 20060701
  Serious: Yes (Other)
  Sender: FDA-Public Use
  Company Number: US-JNJFOC-20060104249

PATIENT
  Sex: Female
  Weight: 73.03 kg

DRUGS (13)
  1. REMICADE [Suspect]
     Dosage: PATIENT RECEIVED 3 DOSES OF REMICADE.
     Route: 042
  2. REMICADE [Suspect]
     Dosage: PATIENT RECEIVED 3 DOSES OF REMICADE.
     Route: 042
  3. REMICADE [Suspect]
     Dosage: PATIENT RECEIVED 3 DOSES OF REMICADE.
     Route: 042
  4. REMICADE [Suspect]
     Dosage: PATIENT RECEIVED 3 DOSES OF REMICADE.
     Route: 042
  5. REMICADE [Suspect]
     Dosage: PATIENT RECEIVED 3 DOSES OF REMICADE.
     Route: 042
  6. REMICADE [Suspect]
     Dosage: PATIENT RECEIVED 3 DOSES OF REMICADE.
     Route: 042
  7. REMICADE [Suspect]
     Dosage: PATIENT RECEIVED 3 DOSES OF REMICADE.
     Route: 042
  8. REMICADE [Suspect]
     Dosage: PATIENT RECEIVED 3 DOSES OF REMICADE.
     Route: 042
  9. REMICADE [Suspect]
     Dosage: PATIENT RECEIVED 3 DOSES OF REMICADE.
     Route: 042
  10. REMICADE [Suspect]
     Dosage: PATIENT RECEIVED 3 DOSES OF REMICADE.
     Route: 042
  11. REMICADE [Suspect]
     Dosage: PATIENT RECEIVED 3 DOSES OF REMICADE.
     Route: 042
  12. REMICADE [Suspect]
     Dosage: PATIENT RECEIVED 3 DOSES OF REMICADE.
     Route: 042
  13. REMICADE [Suspect]
     Indication: RHEUMATOID ARTHRITIS
     Dosage: PATIENT RECEIVED 3 DOSES OF REMICADE.
     Route: 042

REACTIONS (1)
  - LUNG NEOPLASM MALIGNANT [None]
